FAERS Safety Report 23346506 (Version 1)
Quarter: 2023Q4

REPORT INFORMATION
  Report Type: Report from Study
  Country: US (occurrence: US)
  Receive Date: 20231228
  Receipt Date: 20231228
  Transmission Date: 20240109
  Serious: Yes (Hospitalization, Other)
  Sender: FDA-Public Use
  Company Number: US-SUN PHARMACEUTICAL INDUSTRIES LTD-2023R1-425264

PATIENT
  Age: 48 Year
  Sex: Female

DRUGS (1)
  1. CLOZAPINE [Suspect]
     Active Substance: CLOZAPINE
     Indication: Schizoaffective disorder
     Dosage: 100 MG IN THE MORNING AND 200 MG AT THE BEDTIME
     Route: 065
     Dates: start: 2013

REACTIONS (2)
  - Septic shock [Unknown]
  - Pneumonia [Unknown]

NARRATIVE: CASE EVENT DATE: 20231214
